FAERS Safety Report 18648494 (Version 1)
Quarter: 2020Q4

REPORT INFORMATION
  Report Type: Spontaneous
  Country: AR (occurrence: AR)
  Receive Date: 20201222
  Receipt Date: 20201222
  Transmission Date: 20210114
  Serious: Yes (Hospitalization, Other)
  Sender: FDA-Public Use
  Company Number: AR-PFIZER INC-2020500032

PATIENT
  Age: 34 Year
  Sex: Female

DRUGS (2)
  1. LETROZOLE. [Concomitant]
     Active Substance: LETROZOLE
     Dosage: UNK
  2. IBRANCE [Suspect]
     Active Substance: PALBOCICLIB
     Indication: BREAST CANCER METASTATIC
     Dosage: 125 MG, CYCLIC (DAILY, SCHEME 3X1)
     Dates: start: 20170406

REACTIONS (9)
  - Immunosuppression [Unknown]
  - Spinal disorder [Unknown]
  - Pain [Unknown]
  - Pulmonary mass [Unknown]
  - Pyrexia [Unknown]
  - Liver injury [Unknown]
  - Gait disturbance [Unknown]
  - COVID-19 pneumonia [Unknown]
  - Intervertebral disc displacement [Unknown]

NARRATIVE: CASE EVENT DATE: 202010
